FAERS Safety Report 10142495 (Version 3)
Quarter: 2014Q2

REPORT INFORMATION
  Report Type: Spontaneous
  Country: DE (occurrence: DE)
  Receive Date: 20140430
  Receipt Date: 20140606
  Transmission Date: 20141212
  Serious: Yes (Hospitalization, Other)
  Sender: FDA-Public Use
  Company Number: DE-AMGEN-DEUSP2014011680

PATIENT
  Age: 68 Year
  Sex: Female
  Weight: 61 kg

DRUGS (6)
  1. NPLATE [Suspect]
     Indication: PRODUCT USED FOR UNKNOWN INDICATION
     Dosage: 500 MUG, UNK
     Route: 058
     Dates: start: 20131118, end: 20140116
  2. PREDNISOLONE [Concomitant]
     Indication: IMMUNE THROMBOCYTOPENIC PURPURA
     Dosage: 5 MG, QD
     Dates: start: 20131011
  3. QUENSYL [Concomitant]
     Dosage: 200 MG, QD
  4. FRAXIPARIN                         /00889603/ [Concomitant]
     Dosage: 0.3 ML, UNK
  5. FOLIC ACID [Concomitant]
     Dosage: 5 MG, QD
  6. NEBILET [Concomitant]
     Dosage: 5 MG, QD

REACTIONS (8)
  - Renal failure [Recovering/Resolving]
  - Embolism [Recovering/Resolving]
  - Paresis [Unknown]
  - Ischaemic stroke [Unknown]
  - Platelet count increased [Unknown]
  - Hyponatraemia [Unknown]
  - Troponin increased [Unknown]
  - Blood creatinine increased [Unknown]
